FAERS Safety Report 22845231 (Version 3)
Quarter: 2023Q4

REPORT INFORMATION
  Report Type: Spontaneous
  Country: US (occurrence: None)
  Receive Date: 20230821
  Receipt Date: 20231220
  Transmission Date: 20240110
  Serious: Yes (Life-Threatening, Hospitalization, Other)
  Sender: FDA-Public Use
  Company Number: 2023A189790

PATIENT
  Age: 71 Year
  Sex: Male
  Weight: 87.9 kg

DRUGS (12)
  1. OLAPARIB [Suspect]
     Active Substance: OLAPARIB
     Indication: Prostate cancer metastatic
     Route: 048
     Dates: start: 20230328, end: 20230612
  2. OMEPRAZOLE [Suspect]
     Active Substance: OMEPRAZOLE
     Route: 048
     Dates: start: 20230425
  3. ROSUVASTATIN [Suspect]
     Active Substance: ROSUVASTATIN
     Route: 048
     Dates: start: 20080924
  4. ROSUVASTATIN [Suspect]
     Active Substance: ROSUVASTATIN
     Route: 048
     Dates: start: 20230425
  5. VITAMIN D3 [Concomitant]
     Active Substance: CHOLECALCIFEROL
     Dates: start: 20220303
  6. ONDANSETRON [Concomitant]
     Active Substance: ONDANSETRON
     Dates: start: 20230314
  7. ROSUVASTATIN [Concomitant]
     Active Substance: ROSUVASTATIN
     Dates: start: 20080924
  8. DIPHENHYDRAMINE [Concomitant]
     Active Substance: DIPHENHYDRAMINE
     Dates: start: 20230410, end: 20230523
  9. HYDROCORTISONE [Concomitant]
     Active Substance: HYDROCORTISONE
     Dates: start: 20230410, end: 20230523
  10. BENADRYL [Concomitant]
     Active Substance: DIPHENHYDRAMINE HYDROCHLORIDE
     Dates: start: 20230425, end: 20230523
  11. METHYLPREDNISOLONE [Concomitant]
     Active Substance: METHYLPREDNISOLONE
     Dates: start: 20230509, end: 20230523
  12. COLACE [Concomitant]
     Active Substance: DOCUSATE SODIUM
     Dates: start: 20230410

REACTIONS (11)
  - Immune-mediated hepatitis [Recovered/Resolved]
  - Alanine aminotransferase increased [Recovered/Resolved]
  - Anal abscess [Recovering/Resolving]
  - Aspartate aminotransferase increased [Recovered/Resolved]
  - Hepatic enzyme increased [Unknown]
  - Proctalgia [Unknown]
  - Pain [Unknown]
  - Erectile dysfunction [Unknown]
  - Osteoarthritis [Unknown]
  - Glucose tolerance impaired [Unknown]
  - AST/ALT ratio abnormal [Unknown]

NARRATIVE: CASE EVENT DATE: 20230511
